FAERS Safety Report 9648254 (Version 2)
Quarter: 2013Q4

REPORT INFORMATION
  Report Type: Report from Study
  Country: KR (occurrence: KR)
  Receive Date: 20131028
  Receipt Date: 20131028
  Transmission Date: 20140711
  Serious: Yes (Death, Hospitalization)
  Sender: FDA-Public Use
  Company Number: KR-B.I. PHARMACEUTICALS,INC./RIDGEFIELD-2013-BI-13431BI

PATIENT
  Age: 68 Year
  Sex: Male
  Weight: 56.1 kg

DRUGS (14)
  1. BIBW 2992 [Suspect]
     Indication: SQUAMOUS CELL CARCINOMA OF LUNG
     Dosage: 40 MG
     Route: 048
     Dates: start: 20130412, end: 20130509
  2. TRIAL PROCEDURE [Suspect]
     Indication: SQUAMOUS CELL CARCINOMA OF LUNG
  3. PRETREATMENT [Suspect]
     Indication: SQUAMOUS CELL CARCINOMA OF LUNG
  4. LACTICAR HC LOTION [Concomitant]
     Indication: RASH
     Dosage: FORMULATION: LOTION, DAILY DOSE: 1-2 TIMES
     Route: 061
     Dates: start: 20130424, end: 20130510
  5. CODEINE [Concomitant]
     Indication: COUGH
     Dosage: 60 MG
     Route: 048
     Dates: start: 20130328, end: 20130515
  6. TRESTAN [Concomitant]
     Indication: DECREASED APPETITE
     Dosage: 2 ANZ
     Route: 048
     Dates: start: 20130328, end: 20130512
  7. BEROTEC [Concomitant]
     Indication: SPUTUM INCREASED
     Dosage: 5 MG
     Route: 048
     Dates: start: 20130418, end: 20130516
  8. MACPERAN [Concomitant]
     Indication: NAUSEA
     Dosage: 15 MG
     Route: 048
     Dates: start: 20130418, end: 20130508
  9. LOPAMID [Concomitant]
     Indication: DIARRHOEA
     Dosage: 4 MG
     Route: 048
     Dates: start: 20130424, end: 20130509
  10. CURAN [Concomitant]
     Indication: PROPHYLAXIS
     Dosage: 300 MG
     Route: 048
     Dates: start: 20130124, end: 20130507
  11. LANTUS [Concomitant]
     Indication: DIABETES MELLITUS
     Dosage: 14 U
     Route: 058
     Dates: start: 20130117, end: 20130509
  12. DIABEX [Concomitant]
     Indication: DIABETES MELLITUS
     Dosage: 1000 MG
     Route: 048
     Dates: start: 20130117, end: 20130509
  13. ONGLYZA [Concomitant]
     Indication: DIABETES MELLITUS
     Dosage: 5 MG
     Route: 048
     Dates: start: 20130117, end: 20130509
  14. DUROGESIC D TRANS PATCH [Concomitant]
     Indication: NEUROPATHY PERIPHERAL
     Dosage: 37 MCG
     Route: 062
     Dates: start: 20130215

REACTIONS (3)
  - Malignant neoplasm progression [Fatal]
  - Acute respiratory distress syndrome [Fatal]
  - Asthenia [Unknown]
